FAERS Safety Report 6163436-7 (Version None)
Quarter: 2009Q2

REPORT INFORMATION
  Report Type: 
  Country: None (occurrence: None)
  Receive Date: 20090420
  Receipt Date: 20090420
  Transmission Date: 20091009
  Serious: Yes (Life-Threatening)
  Sender: FDA-Public Use
  Company Number: None

PATIENT
  Age: 52 Year
  Sex: Female
  Weight: 96.2 kg

DRUGS (6)
  1. MIRTAZAPINE [Suspect]
     Dosage: 15 MG HS PO
     Route: 048
     Dates: start: 20080625, end: 20081126
  2. LORAZEPAM [Concomitant]
  3. VERAPAMIL [Concomitant]
  4. PRAVASTATIN [Concomitant]
  5. NICOTINE RESIN COMPLEX TABS [Concomitant]
  6. TRAIMTERENE/HCTZ [Concomitant]

REACTIONS (1)
  - PALPITATIONS [None]
